FAERS Safety Report 17949958 (Version 2)
Quarter: 2020Q3

REPORT INFORMATION
  Report Type: Spontaneous
  Country: US (occurrence: US)
  Receive Date: 20200625
  Receipt Date: 20200817
  Transmission Date: 20201103
  Serious: No
  Sender: FDA-Public Use
  Company Number: US-ASTRAZENECA-2020SE80334

PATIENT
  Age: 23248 Day
  Sex: Female
  Weight: 79.4 kg

DRUGS (2)
  1. BYDUREON [Suspect]
     Active Substance: EXENATIDE
     Indication: DIABETES MELLITUS
     Route: 058
     Dates: start: 20200525
  2. METFORMIN [Concomitant]
     Active Substance: METFORMIN HYDROCHLORIDE
     Indication: DIABETES MELLITUS

REACTIONS (4)
  - Fear of injection [Unknown]
  - Wrong technique in device usage process [Recovered/Resolved]
  - Incorrect disposal of product [Unknown]
  - Injection site pain [Unknown]

NARRATIVE: CASE EVENT DATE: 20200622
